FAERS Safety Report 17189494 (Version 1)
Quarter: 2019Q4

REPORT INFORMATION
  Report Type: Spontaneous
  Country: CA (occurrence: CA)
  Receive Date: 20191223
  Receipt Date: 20191223
  Transmission Date: 20200122
  Serious: Yes (Other)
  Sender: FDA-Public Use
  Company Number: CA-AUROBINDO-AUR-APL-2019-105026

PATIENT
  Age: 64 Year
  Sex: Female

DRUGS (13)
  1. GANCICLOVIR. [Suspect]
     Active Substance: GANCICLOVIR
     Indication: CYTOMEGALOVIRUS INFECTION
     Dosage: UNK
     Route: 065
  2. GANCICLOVIR. [Suspect]
     Active Substance: GANCICLOVIR
     Dosage: 10 MILLIGRAM/KILOGRAM, TWO TIMES A DAY
     Route: 042
  3. CICLOSPORIN [Concomitant]
     Active Substance: CYCLOSPORINE
     Indication: GRAFT VERSUS HOST DISEASE IN GASTROINTESTINAL TRACT
     Dosage: UNK
     Route: 065
  4. GANCICLOVIR. [Suspect]
     Active Substance: GANCICLOVIR
     Dosage: 5 MILLIGRAM/KILOGRAM, TWO TIMES A DAY
     Route: 065
  5. VALACICLOVIR [Suspect]
     Active Substance: VALACYCLOVIR HYDROCHLORIDE
     Indication: PROPHYLAXIS
     Dosage: UNK
     Route: 065
  6. ACYCLOVIR. [Suspect]
     Active Substance: ACYCLOVIR
     Indication: PROPHYLAXIS
     Dosage: UNK
     Route: 042
  7. VALGANCICLOVIR. [Suspect]
     Active Substance: VALGANCICLOVIR
     Dosage: UNK
     Route: 048
  8. FOSCARNET [Suspect]
     Active Substance: FOSCARNET
     Indication: CYTOMEGALOVIRUS INFECTION
     Dosage: UNK (ON 7 DAY OF TRANSPLANTATION)
     Route: 065
  9. FOSCARNET [Suspect]
     Active Substance: FOSCARNET
     Dosage: UNK, 126 DAY OF TRANSPLANTATION
     Route: 042
  10. PREDNISONE. [Suspect]
     Active Substance: PREDNISONE
     Indication: PRODUCT USED FOR UNKNOWN INDICATION
     Dosage: UNK (DOSE OF PREDNISONE WAS TAPPERED)
     Route: 065
  11. GANCICLOVIR. [Suspect]
     Active Substance: GANCICLOVIR
     Dosage: UNK, ON DAY 67
     Route: 042
  12. VALGANCICLOVIR. [Suspect]
     Active Substance: VALGANCICLOVIR
     Indication: CYTOMEGALOVIRUS INFECTION
     Dosage: 900 MILLIGRAM/KILOGRAM, TWO TIMES A DAY (INTRODUCED ON DAY 40 OF TRANSPLANTATION)
  13. VALGANCICLOVIR. [Suspect]
     Active Substance: VALGANCICLOVIR
     Dosage: UNK, MAINTENANCE DOSE ON 97 DAY AFTER TRANSPLANTATION
     Route: 065

REACTIONS (1)
  - Pathogen resistance [Unknown]
